FAERS Safety Report 6138131-0 (Version None)
Quarter: 2009Q1

REPORT INFORMATION
  Report Type: 
  Country: None (occurrence: None)
  Receive Date: 20090331
  Receipt Date: 20090319
  Transmission Date: 20090719
  Serious: Yes (Hospitalization)
  Sender: FDA-Public Use
  Company Number: US-ROCHE-621707

PATIENT
  Sex: Female
  Weight: 61.2 kg

DRUGS (13)
  1. PEG-INTERFERON ALFA 2A (RO 25-8310) [Suspect]
     Dosage: FOR 48 WEEKS PER PROTOCOL
     Route: 058
     Dates: start: 20090119, end: 20090311
  2. RIBAVIRIN [Suspect]
     Dosage: FOR 48 WEEKS PER PROTOCOL
     Route: 048
     Dates: start: 20090119, end: 20090311
  3. BLINDED TELAPREVIR [Suspect]
     Dosage: FOR 16 WEEKS PER PROTOCOL
     Route: 048
     Dates: start: 20090119, end: 20090311
  4. ESTRADIOL [Concomitant]
  5. CALCIUM [Concomitant]
  6. VITAMIN D [Concomitant]
  7. M.V.I. [Concomitant]
  8. IBUPROFEN [Concomitant]
  9. TRAZODONE HCL [Concomitant]
  10. ZOLOFT [Concomitant]
  11. NEURONTIN [Concomitant]
  12. ZOPRANOL [Concomitant]
  13. ZOFRAN [Concomitant]

REACTIONS (2)
  - ABDOMINAL PAIN [None]
  - CAECITIS [None]
